FAERS Safety Report 7935654-6 (Version None)
Quarter: 2011Q4

REPORT INFORMATION
  Report Type: 
  Country: None (occurrence: None)
  Receive Date: 20111123
  Receipt Date: 20111115
  Transmission Date: 20120403
  Serious: Yes (Hospitalization)
  Sender: FDA-Public Use
  Company Number: CA-ELI_LILLY_AND_COMPANY-CA201111004917

PATIENT
  Sex: Male

DRUGS (3)
  1. METFORMIN HCL [Concomitant]
     Indication: DIABETES MELLITUS
     Dosage: UNK
     Dates: start: 19960101
  2. HUMULIN 70/30 [Suspect]
     Dosage: 5 U, EACH EVENING
     Dates: start: 19980101
  3. HUMULIN 70/30 [Suspect]
     Dosage: 20 U, EACH MORNING
     Dates: start: 19980101

REACTIONS (6)
  - NERVE INJURY [None]
  - BLISTER [None]
  - GAIT DISTURBANCE [None]
  - CATARACT [None]
  - CARDIAC FAILURE CONGESTIVE [None]
  - SKIN ULCER [None]
